FAERS Safety Report 4721728-X (Version None)
Quarter: 2005Q3

REPORT INFORMATION
  Report Type: 
  Country: None (occurrence: None)
  Receive Date: 20050721
  Receipt Date: 20050318
  Transmission Date: 20060218
  Serious: No
  Sender: FDA-Public Use
  Company Number: US-BRISTOL-MYERS SQUIBB COMPANY-12903407

PATIENT
  Age: 38 Year
  Sex: Female
  Weight: 58 kg

DRUGS (5)
  1. COUMADIN [Suspect]
     Indication: THROMBOSIS
     Dosage: 10-15MG DAILY. INTERRUPTED FEB-2005 DUE TO HERNIA OPERATION FOR 1 WK.
     Dates: start: 20041001
  2. PROZAC [Concomitant]
     Dates: start: 20041001
  3. CALCIUM GLUCONATE [Concomitant]
     Dates: start: 20041001
  4. VITAMINS [Concomitant]
     Dates: start: 20041001
  5. LASIX [Concomitant]

REACTIONS (1)
  - VOMITING [None]
